FAERS Safety Report 5021290-0 (Version None)
Quarter: 2006Q2

REPORT INFORMATION
  Report Type: 
  Country: None (occurrence: None)
  Receive Date: 20060608
  Receipt Date: 20060414
  Transmission Date: 20061013
  Serious: Yes (Death)
  Sender: FDA-Public Use
  Company Number: FR-GLAXOSMITHKLINE-B0420587A

PATIENT
  Age: 76 Year
  Sex: Female

DRUGS (2)
  1. AUGMENTIN '125' [Suspect]
     Dosage: 2000MG PER DAY
     Route: 048
     Dates: start: 20060414
  2. COUGH SIROP [Concomitant]
     Route: 048
     Dates: start: 20060414

REACTIONS (2)
  - DRUG ADMINISTRATION ERROR [None]
  - LUNG INFECTION [None]
